FAERS Safety Report 7332902-0 (Version None)
Quarter: 2011Q1

REPORT INFORMATION
  Report Type: 
  Country: None (occurrence: None)
  Receive Date: 20110228
  Receipt Date: 20110228
  Transmission Date: 20110831
  Serious: Yes (Hospitalization)
  Sender: FDA-Public Use
  Company Number: None

PATIENT
  Sex: Male

DRUGS (1)
  1. WARFARIN SODIUM [Suspect]
     Dosage: 1 TABLET DAILY PO
     Route: 048
     Dates: start: 20101130, end: 20110222

REACTIONS (1)
  - PROTHROMBIN TIME PROLONGED [None]
